FAERS Safety Report 9086893 (Version 1)
Quarter: 2013Q1

REPORT INFORMATION
  Report Type: Report from Study
  Country: US (occurrence: US)
  Receive Date: 20130131
  Receipt Date: 20130131
  Transmission Date: 20140127
  Serious: No
  Sender: FDA-Public Use
  Company Number: US-ABBOTT-12P-163-0996853-00

PATIENT
  Age: 44 Year
  Sex: Male

DRUGS (12)
  1. HUMIRA [Suspect]
     Indication: CROHN^S DISEASE
     Dosage: LOADING DOSE
     Dates: start: 20120919, end: 20120919
  2. HUMIRA [Suspect]
     Dates: start: 20121003
  3. ASACOL [Concomitant]
     Indication: CROHN^S DISEASE
  4. COLAZAL [Concomitant]
     Indication: CROHN^S DISEASE
  5. PHENERGAN [Concomitant]
     Indication: NAUSEA
  6. ZOFRAN [Concomitant]
     Indication: NAUSEA
  7. KLONOPIN [Concomitant]
     Indication: ANXIETY
  8. DEXLANSOPRAZOLE [Concomitant]
     Indication: EROSIVE OESOPHAGITIS
  9. TYLENOL [Concomitant]
     Indication: PRODUCT USED FOR UNKNOWN INDICATION
     Dosage: LOW DOSES
  10. DEPAKOTE [Concomitant]
     Indication: AFFECTIVE DISORDER
  11. LEXAPRO [Concomitant]
     Indication: DEPRESSION
  12. TESTOSTERONE [Concomitant]
     Indication: BLOOD TESTOSTERONE DECREASED

REACTIONS (5)
  - Influenza like illness [Recovered/Resolved]
  - Pain [Recovered/Resolved]
  - Cough [Recovered/Resolved]
  - Pyrexia [Recovered/Resolved]
  - Influenza like illness [Unknown]
